FAERS Safety Report 7679624-4 (Version None)
Quarter: 2011Q3

REPORT INFORMATION
  Report Type: 
  Country: None (occurrence: None)
  Receive Date: 20110812
  Receipt Date: 20110804
  Transmission Date: 20111222
  Serious: Yes (Hospitalization)
  Sender: FDA-Public Use
  Company Number: US-AMGEN-USASP2011039828

PATIENT
  Age: 69 Year

DRUGS (1)
  1. ENBREL [Suspect]
     Indication: RHEUMATOID ARTHRITIS
     Dosage: 50 MG, UNK

REACTIONS (4)
  - ASTHENIA [None]
  - RHEUMATOID ARTHRITIS [None]
  - ANXIETY [None]
  - HYPERTENSION [None]
